FAERS Safety Report 5897116-X (Version None)
Quarter: 2008Q3

REPORT INFORMATION
  Report Type: 
  Country: None (occurrence: None)
  Receive Date: 20080924
  Receipt Date: 20080529
  Transmission Date: 20090109
  Serious: Yes (Hospitalization)
  Sender: FDA-Public Use
  Company Number: US-ASTRAZENECA-2008UW10940

PATIENT
  Age: 24 Year
  Sex: Female

DRUGS (4)
  1. SEROQUEL [Suspect]
     Route: 048
  2. LAMICTAL [Suspect]
  3. WELLBUTRIN [Suspect]
  4. TRILAFON [Suspect]

REACTIONS (2)
  - PYREXIA [None]
  - RASH [None]
